FAERS Safety Report 5272487-6 (Version None)
Quarter: 2007Q1

REPORT INFORMATION
  Report Type: 
  Country: None (occurrence: None)
  Receive Date: 20070322
  Receipt Date: 20060306
  Transmission Date: 20070707
  Serious: No
  Sender: FDA-Public Use
  Company Number: US-BRISTOL-MYERS SQUIBB COMPANY-13274188

PATIENT
  Age: 45 Year
  Sex: Female
  Weight: 63 kg

DRUGS (5)
  1. KENALOG [Suspect]
     Indication: NECK PAIN
     Route: 008
     Dates: start: 20060111
  2. VALIUM [Concomitant]
  3. CELEBREX [Concomitant]
  4. FLEXERIL [Concomitant]
  5. TRAMADOL HCL [Concomitant]

REACTIONS (11)
  - BLOOD PRESSURE ABNORMAL [None]
  - DEPRESSION [None]
  - FOOD CRAVING [None]
  - INCREASED APPETITE [None]
  - INJECTION SITE PAIN [None]
  - INSOMNIA [None]
  - MENSTRUATION IRREGULAR [None]
  - MIGRAINE [None]
  - MUSCLE SPASMS [None]
  - SALIVARY HYPERSECRETION [None]
  - WEIGHT INCREASED [None]
